FAERS Safety Report 8004117-4 (Version None)
Quarter: 2011Q4

REPORT INFORMATION
  Report Type: 
  Country: None (occurrence: None)
  Receive Date: 20111222
  Receipt Date: 20111213
  Transmission Date: 20120403
  Serious: Yes (Other)
  Sender: FDA-Public Use
  Company Number: US-ASTRAZENECA-2011SE69064

PATIENT
  Age: 72 Year
  Sex: Male
  Weight: 74.8 kg

DRUGS (7)
  1. DIGITALIS TAB [Concomitant]
  2. SIMVASTATIN [Concomitant]
  3. ATENOLOL [Concomitant]
  4. FLACENIDE [Concomitant]
  5. ATORVASTATIN [Concomitant]
  6. CRESTOR [Suspect]
     Indication: BLOOD CHOLESTEROL ABNORMAL
     Route: 048
     Dates: start: 20111105
  7. CRESTOR [Suspect]
     Indication: LOW DENSITY LIPOPROTEIN INCREASED
     Route: 048
     Dates: start: 20111105

REACTIONS (1)
  - ATRIAL FIBRILLATION [None]
